FAERS Safety Report 15256648 (Version 1)
Quarter: 2018Q3

REPORT INFORMATION
  Report Type: Spontaneous
  Country: DE (occurrence: DE)
  Receive Date: 20180808
  Receipt Date: 20180808
  Transmission Date: 20181010
  Serious: Yes (Hospitalization)
  Sender: FDA-Public Use
  Company Number: DE-SA-2018SA142599

PATIENT
  Age: 12 Year
  Sex: Female

DRUGS (2)
  1. CEFOTAXIME SODIUM [Suspect]
     Active Substance: CEFOTAXIME SODIUM
     Indication: PNEUMOCOCCAL SEPSIS
  2. PNEUMOCOCCAL VACCINE POLYVALENT NOS [Suspect]
     Active Substance: PNEUMOCOCCAL VACCINE POLYVALENT
     Indication: IMMUNISATION

REACTIONS (15)
  - Vaccination failure [Unknown]
  - General physical health deterioration [Unknown]
  - C-reactive protein increased [Unknown]
  - Disseminated intravascular coagulation [Unknown]
  - Acute kidney injury [Unknown]
  - Necrosis [Unknown]
  - Vomiting [Unknown]
  - Sepsis [Unknown]
  - Leukopenia [Unknown]
  - Chills [Unknown]
  - Antibody test negative [Unknown]
  - Pneumococcal sepsis [Unknown]
  - Thrombocytopenia [Unknown]
  - Pyrexia [Unknown]
  - Petechiae [Unknown]
